FAERS Safety Report 15387989 (Version 1)
Quarter: 2018Q3

REPORT INFORMATION
  Report Type: Spontaneous
  Country: DE (occurrence: DE)
  Receive Date: 20180915
  Receipt Date: 20180915
  Transmission Date: 20181010
  Serious: Yes (Disabling, Other)
  Sender: FDA-Public Use
  Company Number: DE-AUROBINDO-AUR-APL-2018-045391

PATIENT
  Age: 20 Week

DRUGS (5)
  1. ATOSIL                             /00033002/ [Suspect]
     Active Substance: PROMETHAZINE HYDROCHLORIDE
     Indication: DEPRESSION
  2. ZOLPIDEM [Suspect]
     Active Substance: ZOLPIDEM\ZOLPIDEM TARTRATE
     Indication: DEPRESSION
     Dosage: 20 MILLIGRAM IN TOTAL (ANWENDUNG AN 2 TAGEN IM O. G. ZEITRAUM)
     Route: 064
     Dates: start: 20180412, end: 20180607
  3. CANNABIS [Concomitant]
     Active Substance: CANNABIS SATIVA SUBSP. INDICA TOP
     Indication: PRODUCT USED FOR UNKNOWN INDICATION
     Dosage: PRAEKONZEPTIONELL 3?5X WOECHENTLICH
     Route: 064
     Dates: end: 20180411
  4. ZOLPIDEM [Suspect]
     Active Substance: ZOLPIDEM\ZOLPIDEM TARTRATE
     Indication: RESTLESSNESS
  5. ATOSIL                             /00033002/ [Suspect]
     Active Substance: PROMETHAZINE HYDROCHLORIDE
     Indication: RESTLESSNESS
     Dosage: UPTO 30 DROPS (BIS 30 TROPFEN)
     Route: 064
     Dates: start: 20180412, end: 20180607

REACTIONS (2)
  - Foetal exposure during pregnancy [Not Recovered/Not Resolved]
  - Gastroschisis [Not Recovered/Not Resolved]

NARRATIVE: CASE EVENT DATE: 2018
